FAERS Safety Report 4821504-3 (Version None)
Quarter: 2005Q4

REPORT INFORMATION
  Report Type: 
  Country: None (occurrence: None)
  Receive Date: 20051107
  Receipt Date: 20051028
  Transmission Date: 20060501
  Serious: Yes (Death, Hospitalization)
  Sender: FDA-Public Use
  Company Number: MY-GLAXOSMITHKLINE-B0398879A

PATIENT
  Age: 26 Year
  Sex: Female

DRUGS (5)
  1. AUGMENTIN '125' [Suspect]
     Route: 065
  2. PONSTAN [Suspect]
  3. ACETAMINOPHEN [Concomitant]
  4. FAMOTIDINE [Concomitant]
  5. VOREN [Concomitant]

REACTIONS (5)
  - CARDIAC ARREST [None]
  - DYSPNOEA [None]
  - NAUSEA [None]
  - PNEUMONIA [None]
  - TOXIC EPIDERMAL NECROLYSIS [None]
